FAERS Safety Report 8826192 (Version 1)
Quarter: 2012Q4

REPORT INFORMATION
  Report Type: 
  Country: US (occurrence: US)
  Receive Date: 20121008
  Receipt Date: 20121008
  Transmission Date: 20130627
  Serious: Yes (Other)
  Sender: FDA-Public Use
  Company Number: US-ELI_LILLY_AND_COMPANY-US201209007512

PATIENT
  Sex: Female
  Weight: 63.49 kg

DRUGS (3)
  1. PROZAC [Suspect]
     Indication: PANIC ATTACK
     Dosage: 1 DF, unknown
     Dates: start: 2006
  2. CELEXA [Concomitant]
     Indication: PANIC ATTACK
     Dosage: 1 DF, unknown
     Dates: start: 2000
  3. LEXAPRO [Concomitant]
     Indication: PANIC ATTACK
     Dosage: 1 DF, unknown

REACTIONS (6)
  - Abortion spontaneous [Unknown]
  - Weight increased [Unknown]
  - Unevaluable event [Unknown]
  - Influenza like illness [Recovered/Resolved]
  - Exposure during pregnancy [Unknown]
  - Drug ineffective [Unknown]
